FAERS Safety Report 10907069 (Version 1)
Quarter: 2015Q1

REPORT INFORMATION
  Report Type: Spontaneous
  Country: US (occurrence: None)
  Receive Date: 20150309
  Receipt Date: 20150309
  Transmission Date: 20150721
  Serious: Yes (Hospitalization)
  Sender: FDA-Public Use
  Company Number: None

PATIENT
  Age: 74 Year
  Sex: Male

DRUGS (9)
  1. METOPRL/HCTZ [Concomitant]
  2. SIMVASTATIN. [Concomitant]
     Active Substance: SIMVASTATIN
  3. CAPECITABINE. [Suspect]
     Active Substance: CAPECITABINE
     Indication: COLON CANCER
     Dosage: 14 DAYS
     Route: 048
     Dates: start: 201502
  4. VOLTAREN [Concomitant]
     Active Substance: DICLOFENAC SODIUM
  5. KLONOPIN [Concomitant]
     Active Substance: CLONAZEPAM
  6. POTASSIUM [Concomitant]
     Active Substance: POTASSIUM
  7. LISINOPRIL. [Concomitant]
     Active Substance: LISINOPRIL
  8. GABAPENTIN. [Concomitant]
     Active Substance: GABAPENTIN
  9. HYDROCHLOROT [Concomitant]
     Active Substance: HYDROCHLOROTHIAZIDE

REACTIONS (2)
  - Bradycardia [None]
  - Blood pressure systolic increased [None]

NARRATIVE: CASE EVENT DATE: 20150226
